FAERS Safety Report 4830804-2 (Version None)
Quarter: 2005Q4

REPORT INFORMATION
  Report Type: 
  Country: None (occurrence: None)
  Receive Date: 20051117
  Receipt Date: 20050928
  Transmission Date: 20060501
  Serious: Yes (Death, Hospitalization)
  Sender: FDA-Public Use
  Company Number: US-MERCK-0509USA04455

PATIENT
  Age: 64 Year
  Sex: Female
  Weight: 73 kg

DRUGS (2)
  1. VIOXX [Suspect]
     Indication: ARTHRITIS
     Route: 048
     Dates: start: 19990101, end: 20020115
  2. SYNTHROID [Concomitant]
     Route: 065

REACTIONS (6)
  - CARDIO-RESPIRATORY ARREST [None]
  - CHEST PAIN [None]
  - CORONARY ARTERY DISEASE [None]
  - DIABETES MELLITUS [None]
  - HYPERTENSION [None]
  - MYOCARDIAL INFARCTION [None]
